FAERS Safety Report 25603189 (Version 1)
Quarter: 2025Q3

REPORT INFORMATION
  Report Type: Spontaneous
  Country: US (occurrence: US)
  Receive Date: 20250724
  Receipt Date: 20250724
  Transmission Date: 20251021
  Serious: Yes (Death)
  Sender: MALLINCKRODT
  Company Number: US-MALLINCKRODT-MNK202504443

PATIENT
  Age: 10 Year
  Sex: Male

DRUGS (1)
  1. NITRIC OXIDE [Suspect]
     Active Substance: NITRIC OXIDE
     Indication: Pulmonary veno-occlusive disease
     Route: 055

REACTIONS (3)
  - Pulmonary veno-occlusive disease [Fatal]
  - Condition aggravated [Fatal]
  - Product use issue [Unknown]
